FAERS Safety Report 5372764-4 (Version None)
Quarter: 2007Q2

REPORT INFORMATION
  Report Type: 
  Country: None (occurrence: None)
  Receive Date: 20070627
  Receipt Date: 20070618
  Transmission Date: 20071010
  Serious: Yes (Death, Other)
  Sender: FDA-Public Use
  Company Number: JP-PFIZER INC-2007048274

PATIENT
  Age: 69 Year
  Sex: Female

DRUGS (4)
  1. SILDENAFIL (PAH) [Suspect]
     Indication: PULMONARY HYPERTENSION
     Dosage: DAILY DOSE:75MG-FREQ:DAILY
     Dates: start: 20050520, end: 20051012
  2. METHYLPREDNISOLONE [Suspect]
     Indication: ILL-DEFINED DISORDER
  3. NITRIC OXIDE [Suspect]
     Indication: ILL-DEFINED DISORDER
  4. EPOPROSTENOL SODIUM [Suspect]
     Indication: ILL-DEFINED DISORDER

REACTIONS (1)
  - STEVENS-JOHNSON SYNDROME [None]
